FAERS Safety Report 4438814-4 (Version None)
Quarter: 2004Q3

REPORT INFORMATION
  Report Type: 
  Country: None (occurrence: None)
  Receive Date: 20040901
  Receipt Date: 20040820
  Transmission Date: 20050211
  Serious: Yes (Hospitalization)
  Sender: FDA-Public Use
  Company Number: JP-BRISTOL-MYERS SQUIBB COMPANY-12683769

PATIENT
  Age: 70 Year
  Sex: Female

DRUGS (2)
  1. MITOMYCIN [Suspect]
     Indication: GLAUCOMA
     Route: 057
     Dates: start: 20030409, end: 20030409
  2. NEUCHOLIN-A [Suspect]
     Indication: CATARACT
     Route: 031
     Dates: start: 20030409, end: 20030409

REACTIONS (1)
  - CORNEAL DISORDER [None]
